FAERS Safety Report 17417826 (Version 1)
Quarter: 2020Q1

REPORT INFORMATION
  Report Type: Spontaneous
  Country: US (occurrence: US)
  Receive Date: 20200214
  Receipt Date: 20200214
  Transmission Date: 20200409
  Serious: Yes (Hospitalization)
  Sender: FDA-Public Use
  Company Number: None

PATIENT
  Age: 53 Year
  Sex: Male
  Weight: 99 kg

DRUGS (5)
  1. PREZISTA [Concomitant]
     Active Substance: DARUNAVIR ETHANOLATE
     Dates: start: 20190103, end: 20200116
  2. RITONAVIR. [Concomitant]
     Active Substance: RITONAVIR
     Dates: start: 20190103, end: 20200116
  3. PIFELTRO [Concomitant]
     Active Substance: DORAVIRINE
     Dates: start: 20190103, end: 20200116
  4. TROGARZO [Suspect]
     Active Substance: IBALIZUMAB-UIYK
     Indication: HIV INFECTION
     Dosage: ?          OTHER FREQUENCY:EVERY 14 DAYS;?
     Route: 040
     Dates: start: 20190103, end: 20200116
  5. TIVICAY [Concomitant]
     Active Substance: DOLUTEGRAVIR SODIUM
     Dates: start: 20190103, end: 20200116

REACTIONS (2)
  - Hepatitis B reactivation [None]
  - Liver injury [None]

NARRATIVE: CASE EVENT DATE: 20200118
